FAERS Safety Report 5772636-7 (Version None)
Quarter: 2008Q2

REPORT INFORMATION
  Report Type: 
  Country: None (occurrence: None)
  Receive Date: 20080613
  Receipt Date: 20080523
  Transmission Date: 20081010
  Serious: No
  Sender: FDA-Public Use
  Company Number: US-BOEHRINGER INGELHEIM GMBH, GERMANY-2008-BP-08050BP

PATIENT
  Sex: Female

DRUGS (3)
  1. ZANTAC 75 [Suspect]
     Indication: GASTROOESOPHAGEAL REFLUX DISEASE
     Route: 048
     Dates: start: 20080509
  2. ZANTAC 75 [Suspect]
  3. LASIX [Concomitant]

REACTIONS (1)
  - SKIN BURNING SENSATION [None]
